FAERS Safety Report 19371140 (Version 3)
Quarter: 2021Q4

REPORT INFORMATION
  Report Type: Report from Study
  Country: KR (occurrence: KR)
  Receive Date: 20210604
  Receipt Date: 20211115
  Transmission Date: 20220303
  Serious: Yes (Other)
  Sender: FDA-Public Use
  Company Number: KR-KYOWAKIRIN-2021AKK009341

PATIENT
  Age: 25 Year
  Sex: Male

DRUGS (5)
  1. FILGRASTIM [Suspect]
     Active Substance: FILGRASTIM
     Indication: Product used for unknown indication
     Dosage: UNK
     Route: 065
     Dates: start: 20121008, end: 20121008
  2. DASATINIB [Concomitant]
     Active Substance: DASATINIB
     Indication: Product used for unknown indication
     Dosage: UNK
     Dates: start: 20120621, end: 20121008
  3. FOLIC ACID [Concomitant]
     Active Substance: FOLIC ACID
     Indication: Product used for unknown indication
     Dosage: UNK
     Dates: start: 20111112
  4. HYDROXYUREA [Concomitant]
     Active Substance: HYDROXYUREA
     Indication: Product used for unknown indication
     Dosage: UNK
     Dates: start: 20111103, end: 20111117
  5. IMATINIB [Concomitant]
     Active Substance: IMATINIB
     Indication: Product used for unknown indication
     Dosage: UNK
     Dates: start: 20111111, end: 20120620

REACTIONS (1)
  - Leukopenia [Recovered/Resolved]

NARRATIVE: CASE EVENT DATE: 20121008
